FAERS Safety Report 5194202-7 (Version None)
Quarter: 2006Q4

REPORT INFORMATION
  Report Type: 
  Country: None (occurrence: None)
  Receive Date: 20061228
  Receipt Date: 20061219
  Transmission Date: 20070319
  Serious: Yes (Death)
  Sender: FDA-Public Use
  Company Number: JP-PFIZER INC-2006154941

PATIENT
  Age: 70 Year

DRUGS (2)
  1. SOLU-MEDROL [Suspect]
     Indication: HYPERCALCAEMIA
     Route: 042
  2. AREDIA [Concomitant]
     Route: 042

REACTIONS (1)
  - PANCREATITIS [None]
